FAERS Safety Report 5607427-0 (Version None)
Quarter: 2008Q1

REPORT INFORMATION
  Report Type: 
  Country: None (occurrence: None)
  Receive Date: 20080130
  Receipt Date: 20080110
  Transmission Date: 20080703
  Serious: No
  Sender: FDA-Public Use
  Company Number: US-JNJFOC-20080102839

PATIENT
  Sex: Male
  Weight: 95.26 kg

DRUGS (7)
  1. INVEGA [Suspect]
     Route: 048
  2. INVEGA [Suspect]
     Indication: SCHIZOAFFECTIVE DISORDER
     Route: 048
  3. VISTORIL [Concomitant]
     Indication: ANXIETY
  4. LISINOPRIL [Concomitant]
     Indication: HYPERTENSION
     Route: 048
  5. LASIX [Concomitant]
     Indication: HYPERTENSION
  6. AVANDIA [Concomitant]
     Indication: DIABETES MELLITUS
  7. GLUCOPHAGE [Concomitant]
     Indication: DIABETES MELLITUS

REACTIONS (4)
  - AMNESIA [None]
  - GAIT DISTURBANCE [None]
  - LETHARGY [None]
  - PHOTOSENSITIVITY REACTION [None]
